FAERS Safety Report 7754459-2 (Version None)
Quarter: 2011Q3

REPORT INFORMATION
  Report Type: 
  Country: None (occurrence: None)
  Receive Date: 20110915
  Receipt Date: 20110913
  Transmission Date: 20111222
  Serious: Yes (Other)
  Sender: FDA-Public Use
  Company Number: US-ABBOTT-08P-163-0444758-00

PATIENT
  Sex: Female
  Weight: 74.91 kg

DRUGS (18)
  1. DEPAKOTE [Suspect]
     Indication: BIPOLAR DISORDER
     Route: 048
     Dates: start: 20000101, end: 20080101
  2. ALPRAZOLAM [Concomitant]
     Indication: ANXIETY
     Route: 048
     Dates: start: 20070101
  3. LITHIUM [Concomitant]
     Indication: BIPOLAR DISORDER
     Route: 048
  4. PROPRANOLOL [Concomitant]
     Indication: CARDIOVASCULAR EVENT PROPHYLAXIS
  5. ASPIRIN [Concomitant]
     Indication: CARDIOVASCULAR EVENT PROPHYLAXIS
     Route: 048
  6. SYNTHROID [Concomitant]
     Indication: DEPRESSION
     Route: 048
     Dates: start: 19920101
  7. LIPITOR [Concomitant]
     Indication: CARDIOVASCULAR EVENT PROPHYLAXIS
  8. VYTORIN [Concomitant]
     Indication: BLOOD CHOLESTEROL
     Route: 048
     Dates: start: 20070101
  9. INDURAL [Concomitant]
     Indication: CARDIOVASCULAR EVENT PROPHYLAXIS
     Route: 048
     Dates: start: 20060101
  10. LEXAPRO [Concomitant]
     Indication: DEPRESSION
  11. TOPAMAX [Interacting]
     Indication: BIPOLAR DISORDER
     Route: 048
     Dates: start: 20070901, end: 20071201
  12. TOPAMAX [Interacting]
     Route: 048
  13. TOPAMAX [Interacting]
  14. NABUMETONE [Concomitant]
     Indication: BACK PAIN
     Route: 048
     Dates: start: 20070101
  15. DEPAKOTE [Suspect]
     Indication: EPILEPSY
  16. TOPAMAX [Interacting]
     Route: 048
  17. FLONASE [Concomitant]
     Indication: HYPERSENSITIVITY
     Dates: start: 20080301
  18. PLAVIX [Concomitant]
     Indication: THROMBOSIS PROPHYLAXIS
     Route: 048
     Dates: start: 20060101

REACTIONS (20)
  - APHASIA [None]
  - UNEVALUABLE EVENT [None]
  - DECREASED APPETITE [None]
  - TREMOR [None]
  - MYOCARDIAL INFARCTION [None]
  - SUICIDAL IDEATION [None]
  - FALL [None]
  - HEPATIC ENZYME INCREASED [None]
  - DRUG INTERACTION [None]
  - DIARRHOEA [None]
  - DEPRESSION [None]
  - LETHARGY [None]
  - MENTAL IMPAIRMENT [None]
  - DIZZINESS [None]
  - CONSTIPATION [None]
  - SOMNOLENCE [None]
  - COUGH [None]
  - BALANCE DISORDER [None]
  - RHINORRHOEA [None]
  - DIPLOPIA [None]
